FAERS Safety Report 21080215 (Version 1)
Quarter: 2022Q3

REPORT INFORMATION
  Report Type: Spontaneous
  Country: ES (occurrence: ES)
  Receive Date: 20220714
  Receipt Date: 20220714
  Transmission Date: 20221026
  Serious: Yes (Life-Threatening)
  Sender: FDA-Public Use
  Company Number: None

PATIENT
  Age: 70 Year
  Sex: Male

DRUGS (3)
  1. GENTAMICIN [Suspect]
     Active Substance: GENTAMICIN
     Indication: Antibiotic prophylaxis
     Dosage: INTRAVENOUS USE, NUMBER OF UNITS IN THE INTERVAL: 1, DEFINITION OF THE TIME INTERVAL UNIT: TOTAL
     Route: 042
     Dates: start: 20180628, end: 20180628
  2. TEICOPLANIN [Suspect]
     Active Substance: TEICOPLANIN
     Indication: Antibiotic prophylaxis
     Dosage: INTRAVENOUS USE, NUMBER OF UNITS IN THE INTERVAL: 1, DEFINITION OF THE TIME INTERVAL UNIT: TOTAL
     Route: 042
     Dates: start: 20180628, end: 20180628
  3. METAMIZOLE MAGNESIUM [Suspect]
     Active Substance: METAMIZOLE MAGNESIUM
     Indication: Pain
     Dosage: NUMBER OF UNITS IN THE INTERVAL: 1, DEFINITION OF THE TIME INTERVAL UNIT: TOTAL
     Route: 065
     Dates: start: 20180628, end: 20180628

REACTIONS (1)
  - Anaphylactic reaction [Recovered/Resolved]

NARRATIVE: CASE EVENT DATE: 20180628
